FAERS Safety Report 5046945-3 (Version None)
Quarter: 2006Q2

REPORT INFORMATION
  Report Type: 
  Country: None (occurrence: None)
  Receive Date: 20060601
  Receipt Date: 20060314
  Transmission Date: 20061013
  Serious: No
  Sender: FDA-Public Use
  Company Number: 2006PV010235

PATIENT
  Age: 25 Year
  Sex: Female
  Weight: 98.4306 kg

DRUGS (1)
  1. BYETTA [Suspect]
     Indication: DIABETES MELLITUS INSULIN-DEPENDENT
     Dosage: 5 MCG;BID;SC
     Route: 058
     Dates: start: 20060212

REACTIONS (4)
  - ABDOMINAL DISTENSION [None]
  - BURNING SENSATION [None]
  - CONTUSION [None]
  - DECREASED APPETITE [None]
